FAERS Safety Report 24208246 (Version 3)
Quarter: 2025Q1

REPORT INFORMATION
  Report Type: Report from Study
  Country: US (occurrence: US)
  Receive Date: 20240814
  Receipt Date: 20250219
  Transmission Date: 20250409
  Serious: Yes (Other)
  Sender: TEVA
  Company Number: US-TEVA-2022-US-2832048

PATIENT
  Age: 63 Year
  Sex: Female

DRUGS (7)
  1. AUSTEDO [Suspect]
     Active Substance: DEUTETRABENAZINE
     Indication: Product used for unknown indication
     Dosage: DOSAGE TEXT: 12MG TWICE DAILY
     Route: 065
     Dates: start: 20220701, end: 20221031
  2. AUSTEDO [Suspect]
     Active Substance: DEUTETRABENAZINE
     Indication: Product used for unknown indication
     Dosage: DOSAGE TEXT: 12MG TWICE DAILY
     Route: 065
     Dates: start: 20230224
  3. AUSTEDO [Suspect]
     Active Substance: DEUTETRABENAZINE
     Indication: Product used for unknown indication
     Dosage: 12MG TWICE DAILY
     Route: 065
     Dates: start: 20240325
  4. AUSTEDO [Suspect]
     Active Substance: DEUTETRABENAZINE
     Indication: Product used for unknown indication
     Dosage: 12MG TWICE DAILY
     Route: 065
     Dates: start: 20240510
  5. AUSTEDO XR [Suspect]
     Active Substance: DEUTETRABENAZINE
     Indication: Product used for unknown indication
     Route: 065
     Dates: start: 202404, end: 2024
  6. AUSTEDO XR [Suspect]
     Active Substance: DEUTETRABENAZINE
     Indication: Product used for unknown indication
     Route: 065
  7. AUSTEDO XR [Suspect]
     Active Substance: DEUTETRABENAZINE
     Indication: Product used for unknown indication
     Route: 065

REACTIONS (12)
  - Road traffic accident [Unknown]
  - Urinary retention [Recovered/Resolved]
  - Wrong product administered [Unknown]
  - Feeling abnormal [Recovered/Resolved]
  - Adverse drug reaction [Unknown]
  - Dyskinesia [Not Recovered/Not Resolved]
  - Product use issue [Unknown]
  - Insurance issue [Unknown]
  - Confusional state [Recovered/Resolved]
  - Somnolence [Unknown]
  - Wrong dose [Unknown]
  - Product use issue [Unknown]

NARRATIVE: CASE EVENT DATE: 20221031
